FAERS Safety Report 6188106-0 (Version None)
Quarter: 2009Q2

REPORT INFORMATION
  Report Type: 
  Country: None (occurrence: None)
  Receive Date: 20090513
  Receipt Date: 20090501
  Transmission Date: 20091009
  Serious: Yes (Hospitalization, Other)
  Sender: FDA-Public Use
  Company Number: PHHY2009IE01543

PATIENT
  Sex: Male
  Weight: 146 kg

DRUGS (14)
  1. CLOZARIL [Suspect]
     Indication: SCHIZOPHRENIA
     Dosage: 450 MG DAILY
     Route: 048
     Dates: start: 20030725, end: 20090105
  2. VENLAFAXINE HCL [Suspect]
     Indication: SCHIZOPHRENIA
     Dosage: 75 MG
     Route: 048
  3. TOPAMAX [Concomitant]
     Indication: AFFECTIVE DISORDER
     Dosage: 50 MG/DAY
     Route: 048
     Dates: start: 20070101
  4. TOPAMAX [Concomitant]
     Indication: WEIGHT DECREASED
     Dosage: 25 MG
     Route: 048
  5. AMISULPRIDE [Suspect]
     Indication: SCHIZOPHRENIA
     Dosage: 250 MG
     Route: 048
  6. RAMIPRIL [Suspect]
     Indication: HYPERTENSION
     Dosage: 7.5 MG
     Route: 048
  7. LACTULOSE [Suspect]
     Indication: CONSTIPATION
     Dosage: 15 ML, BID
     Route: 048
  8. FLURAZEPAM [Suspect]
     Dosage: 15 MG
     Route: 048
  9. ABILIFY [Concomitant]
     Route: 065
  10. SOLIAN [Concomitant]
     Indication: SCHIZOPHRENIA
     Dosage: 250 MG/DAY
     Route: 048
     Dates: start: 20030725
  11. ISTIN [Concomitant]
     Indication: HYPERTENSION
     Dosage: 5 MG
     Route: 048
     Dates: start: 20060101
  12. ISTIN [Concomitant]
     Dosage: 5 MG/DAY
     Route: 048
  13. DALMANE [Concomitant]
     Indication: SLEEP DISORDER
     Dosage: 15 MG / DAY
     Route: 048
     Dates: start: 20060101
  14. EFFEXOR [Concomitant]
     Indication: DEPRESSION
     Dosage: 75 MG/DAY
     Route: 048
     Dates: start: 20060101

REACTIONS (11)
  - EOSINOPHIL COUNT DECREASED [None]
  - MEAN CELL HAEMOGLOBIN CONCENTRATION INCREASED [None]
  - MEAN PLATELET VOLUME INCREASED [None]
  - MENTAL DISORDER [None]
  - MONOCYTE COUNT DECREASED [None]
  - NASOPHARYNGITIS [None]
  - NEUTROPENIA [None]
  - NEUTROPHIL COUNT DECREASED [None]
  - PSYCHOTIC DISORDER [None]
  - UPPER RESPIRATORY TRACT INFECTION [None]
  - WHITE BLOOD CELL COUNT DECREASED [None]
